FAERS Safety Report 10464498 (Version 1)
Quarter: 2014Q3

REPORT INFORMATION
  Report Type: Spontaneous
  Country: US (occurrence: US)
  Receive Date: 20140919
  Receipt Date: 20140919
  Transmission Date: 20150326
  Serious: Yes (Other)
  Sender: FDA-Public Use
  Company Number: US-JNJFOC-20140913783

PATIENT
  Age: 56 Year
  Sex: Male

DRUGS (14)
  1. PANTOPRAZOLE [Concomitant]
     Active Substance: PANTOPRAZOLE SODIUM
  2. LYRICA [Concomitant]
     Active Substance: PREGABALIN
  3. LANTUS [Concomitant]
     Active Substance: INSULIN GLARGINE
  4. COREG [Concomitant]
     Active Substance: CARVEDILOL
  5. HUMALOG [Concomitant]
     Active Substance: INSULIN LISPRO
  6. ATORVASTATIN [Concomitant]
     Active Substance: ATORVASTATIN
  7. LISINOPRIL. [Concomitant]
     Active Substance: LISINOPRIL
  8. NOVOLOG [Concomitant]
     Active Substance: INSULIN ASPART
  9. PROVENTIL [Concomitant]
     Active Substance: ALBUTEROL
  10. GABAPENTIN. [Concomitant]
     Active Substance: GABAPENTIN
  11. INVOKANA [Suspect]
     Active Substance: CANAGLIFLOZIN
     Indication: PRODUCT USED FOR UNKNOWN INDICATION
     Route: 065
     Dates: start: 2014, end: 2014
  12. NORCO [Concomitant]
     Active Substance: ACETAMINOPHEN\HYDROCODONE BITARTRATE
  13. ISOSORBIDE [Concomitant]
     Active Substance: ISOSORBIDE
  14. ASPIRIN. [Concomitant]
     Active Substance: ASPIRIN

REACTIONS (1)
  - Suicidal ideation [Unknown]
